FAERS Safety Report 6983790-3 (Version None)
Quarter: 2010Q3

REPORT INFORMATION
  Report Type: 
  Country: None (occurrence: None)
  Receive Date: 20100914
  Receipt Date: 20090202
  Transmission Date: 20110219
  Serious: No
  Sender: FDA-Public Use
  Company Number: US-WYE-H08030809

PATIENT
  Age: 8 Year
  Sex: Female
  Weight: 24.97 kg

DRUGS (2)
  1. CHILDREN'S ADVIL [Suspect]
     Indication: HEADACHE
     Dosage: 2 TEASPOONS X 1
     Route: 048
     Dates: start: 20090202, end: 20090202
  2. BENADRYL [Concomitant]

REACTIONS (1)
  - EYE SWELLING [None]
